FAERS Safety Report 15783792 (Version 11)
Quarter: 2021Q3

REPORT INFORMATION
  Report Type: Spontaneous
  Country: JP (occurrence: JP)
  Receive Date: 20190102
  Receipt Date: 20210713
  Transmission Date: 20211014
  Serious: Yes (Hospitalization, Other)
  Sender: FDA-Public Use
  Company Number: JP-LUNDBECK-DKLU2052039

PATIENT
  Age: 11 Month
  Sex: Female
  Weight: 9.8 kg

DRUGS (48)
  1. VIGABATRIN (FOR ORAL SOLUTION) [Suspect]
     Active Substance: VIGABATRIN
     Indication: INFANTILE SPASMS
     Dosage: 50 MG, BID
     Route: 048
     Dates: start: 20181029, end: 20181102
  2. VIGABATRIN (FOR ORAL SOLUTION) [Suspect]
     Active Substance: VIGABATRIN
     Dosage: 300 MG, BID (75 MG/KG/DAY)
     Route: 048
     Dates: start: 20180707, end: 20180709
  3. VIGABATRIN (FOR ORAL SOLUTION) [Suspect]
     Active Substance: VIGABATRIN
     Dosage: 200 MG, BID
     Route: 048
     Dates: start: 20180704, end: 20180706
  4. VIGABATRIN (FOR ORAL SOLUTION) [Suspect]
     Active Substance: VIGABATRIN
     Dosage: 450 MG, BID
     Route: 048
     Dates: start: 20190305, end: 20190414
  5. VALERIN MAX [Concomitant]
     Indication: PRODUCT USED FOR UNKNOWN INDICATION
     Dosage: 6 ML
     Route: 065
     Dates: start: 20180704
  6. RIVOTRIL [Concomitant]
     Active Substance: CLONAZEPAM
     Dosage: DAILY DOSE: 0.4 MG
     Route: 048
     Dates: start: 20180604, end: 20180716
  7. ZONISAMIDE STADA [Concomitant]
     Dosage: 36 MG
     Route: 048
     Dates: start: 20181112
  8. MYDRIN?P [Concomitant]
     Active Substance: PHENYLEPHRINE HYDROCHLORIDE\TROPICAMIDE
     Indication: OPHTHALMOLOGICAL EXAMINATION
     Dosage: 10 MIN, 3 TIMES
     Route: 047
     Dates: start: 20180703, end: 20180703
  9. VIGABATRIN (FOR ORAL SOLUTION) [Suspect]
     Active Substance: VIGABATRIN
     Dosage: 325 MG, BID
     Route: 048
     Dates: start: 20190116, end: 20190303
  10. VIGABATRIN (FOR ORAL SOLUTION) [Suspect]
     Active Substance: VIGABATRIN
     Dosage: UNK
     Route: 048
     Dates: start: 2020, end: 20200929
  11. L CARTIN FF [Concomitant]
     Active Substance: LEVOCARNITINE
     Dosage: 3 ML
     Route: 065
  12. ZONISAMIDE STADA [Concomitant]
     Dosage: 80 MG
     Route: 048
     Dates: start: 20181126
  13. CLOBAZAM. [Concomitant]
     Active Substance: CLOBAZAM
     Indication: INFANTILE SPASMS
     Dosage: DAILY DOSE: 6 MG
     Route: 048
     Dates: start: 20190618
  14. VIMPAT [Concomitant]
     Active Substance: LACOSAMIDE
     Dosage: DAILY DOSE: 40 MG
     Route: 048
     Dates: start: 20200412
  15. VIGABATRIN (FOR ORAL SOLUTION) [Suspect]
     Active Substance: VIGABATRIN
     Dosage: 250 MG, BID
     Route: 048
     Dates: start: 20180711, end: 20180712
  16. VIGABATRIN (FOR ORAL SOLUTION) [Suspect]
     Active Substance: VIGABATRIN
     Dosage: 250 MG, BID
     Route: 048
     Dates: start: 20181116, end: 20181125
  17. VIGABATRIN (FOR ORAL SOLUTION) [Suspect]
     Active Substance: VIGABATRIN
     Dosage: 300 MG, BID (75 MG/KG/DAY)
     Route: 048
     Dates: start: 20181210, end: 20181217
  18. RIVOTRIL [Concomitant]
     Active Substance: CLONAZEPAM
     Indication: INFANTILE SPASMS
     Dosage: 0.2 G
     Route: 065
     Dates: start: 20180608
  19. VALPROATE SODIUM. [Concomitant]
     Active Substance: VALPROATE SODIUM
     Indication: INFANTILE SPASMS
     Dosage: DAILY DOSE: 300 MG
     Route: 048
  20. ZONISAMIDE STADA [Concomitant]
     Dosage: 95 MG
     Route: 048
     Dates: start: 20180918
  21. LAMOTRIGINE. [Concomitant]
     Active Substance: LAMOTRIGINE
     Indication: INFANTILE SPASMS
     Dosage: DAILY DOSE: 45 MG
     Route: 048
     Dates: start: 20200117
  22. VIMPAT [Concomitant]
     Active Substance: LACOSAMIDE
     Indication: INFANTILE SPASMS
     Dosage: DAILY DOSE: 60 MG
     Route: 048
     Dates: start: 20191004, end: 20200411
  23. TEGRETOL [Concomitant]
     Active Substance: CARBAMAZEPINE
     Indication: PRODUCT USED FOR UNKNOWN INDICATION
     Dosage: DAILY DOSE: 100 MG
     Route: 048
     Dates: start: 20200312
  24. VIGABATRIN (FOR ORAL SOLUTION) [Suspect]
     Active Substance: VIGABATRIN
     Dosage: 300 MG, BID (75 MG/KG/DAY)
     Route: 048
     Dates: start: 20181126, end: 20181202
  25. VIGABATRIN (FOR ORAL SOLUTION) [Suspect]
     Active Substance: VIGABATRIN
     Dosage: 450 MG, BID
     Route: 048
     Dates: start: 20180710, end: 20180710
  26. VIGABATRIN (FOR ORAL SOLUTION) [Suspect]
     Active Substance: VIGABATRIN
     Dosage: 150 MG, BID
     Route: 048
     Dates: start: 20181103, end: 20181111
  27. VIGABATRIN (FOR ORAL SOLUTION) [Suspect]
     Active Substance: VIGABATRIN
     Dosage: 500 MG, BID
     Route: 048
     Dates: start: 20190415, end: 20190602
  28. CLONAZEPAM. [Concomitant]
     Active Substance: CLONAZEPAM
     Indication: INFANTILE SPASMS
     Dosage: DAILY DOSE: 0.4 MG
     Route: 048
     Dates: start: 20180604, end: 20180716
  29. MAGNESIUM OXIDE. [Concomitant]
     Active Substance: MAGNESIUM OXIDE
     Indication: CONSTIPATION
     Dosage: DAILY DOSE: 0.3 G
     Route: 048
     Dates: end: 20200312
  30. VIGABATRIN (FOR ORAL SOLUTION) [Suspect]
     Active Substance: VIGABATRIN
     Dosage: 375 MG, BID
     Route: 048
     Dates: start: 20190603, end: 20200326
  31. L CARTIN FF [Concomitant]
     Active Substance: LEVOCARNITINE
     Indication: PRODUCT USED FOR UNKNOWN INDICATION
     Dosage: DAILY DOSE: 400 MG
     Route: 048
  32. ZONISAMIDE STADA [Concomitant]
     Dosage: 110 MG
     Route: 048
     Dates: start: 20181001
  33. VIGABATRIN (FOR ORAL SOLUTION) [Suspect]
     Active Substance: VIGABATRIN
     Dosage: 200 MG, BID
     Route: 048
     Dates: start: 20181112, end: 20181115
  34. VIGABATRIN (FOR ORAL SOLUTION) [Suspect]
     Active Substance: VIGABATRIN
     Dosage: 350 MG, BID
     Route: 048
     Dates: start: 20181203, end: 20181209
  35. VIGABATRIN (FOR ORAL SOLUTION) [Suspect]
     Active Substance: VIGABATRIN
     Dosage: 325 MG, BID
     Route: 048
     Dates: start: 20181218, end: 20190107
  36. VIGABATRIN (FOR ORAL SOLUTION) [Suspect]
     Active Substance: VIGABATRIN
     Dosage: 325 MG, BID
     Route: 048
     Dates: start: 20190304, end: 20190304
  37. VIGABATRIN (FOR ORAL SOLUTION) [Suspect]
     Active Substance: VIGABATRIN
     Dosage: 250 MG, BID
     Route: 048
     Dates: start: 20200312, end: 20200414
  38. ZONISAMIDE STADA [Concomitant]
     Dosage: 80 MG
     Route: 048
     Dates: start: 20180903
  39. ZONISAMIDE STADA [Concomitant]
     Dosage: 80 MG
     Route: 048
     Dates: start: 20181029
  40. ZONISAMIDE STADA [Concomitant]
     Dosage: DAILY DOSE: 120 MG
     Route: 048
     Dates: start: 20181218
  41. AFINITOR [Concomitant]
     Active Substance: EVEROLIMUS
     Indication: INFANTILE SPASMS
     Dosage: DAILY DOSE: 15 MG
     Route: 048
     Dates: start: 20191004
  42. VIGABATRIN (FOR ORAL SOLUTION) [Suspect]
     Active Substance: VIGABATRIN
     Dosage: 125 MG, BID
     Route: 048
     Dates: start: 20180713, end: 20180715
  43. VIGABATRIN (FOR ORAL SOLUTION) [Suspect]
     Active Substance: VIGABATRIN
     Dosage: 350 MG, BID
     Route: 048
     Dates: start: 20190108, end: 20190115
  44. VIGABATRIN (FOR ORAL SOLUTION) [Suspect]
     Active Substance: VIGABATRIN
     Dosage: 125 MG, BID
     Route: 048
     Dates: start: 20200415, end: 20200424
  45. ZONISAMIDE STADA [Concomitant]
     Indication: INFANTILE SPASMS
     Dosage: 36 MG
     Route: 048
     Dates: start: 20180716
  46. ZONISAMIDE STADA [Concomitant]
     Dosage: 56 MG
     Route: 048
     Dates: start: 20180814
  47. ZONISAMIDE STADA [Concomitant]
     Dosage: 56 MG
     Route: 048
     Dates: start: 20181105
  48. ZONISAMIDE STADA [Concomitant]
     Dosage: 100 MG
     Route: 048
     Dates: start: 20181203

REACTIONS (7)
  - Haemangioma [Recovering/Resolving]
  - Myoclonus [Recovered/Resolved]
  - Retinogram abnormal [Unknown]
  - Myoclonus [Recovered/Resolved]
  - Alopecia [Recovered/Resolved]
  - Joint swelling [Recovering/Resolving]
  - Myoclonus [Recovered/Resolved]

NARRATIVE: CASE EVENT DATE: 20180709
